FAERS Safety Report 7113584-X (Version None)
Quarter: 2010Q4

REPORT INFORMATION
  Report Type: 
  Country: None (occurrence: None)
  Receive Date: 20101119
  Receipt Date: 20101109
  Transmission Date: 20110411
  Serious: Yes (Hospitalization, Other)
  Sender: FDA-Public Use
  Company Number: VE-ROCHE-740032

PATIENT
  Sex: Male
  Weight: 80 kg

DRUGS (4)
  1. AVASTIN [Suspect]
     Indication: COLON CANCER
     Dosage: CO-INDICATION: BLADDER CANCER. FREQUENCY: CYCLE
     Route: 042
     Dates: start: 20090810
  2. XELODA [Suspect]
     Indication: COLON CANCER
     Dosage: FREQUENCY: DAY
     Route: 048
  3. IRINOTECAN HCL [Concomitant]
     Indication: COLON CANCER
     Route: 042
  4. LEVAQUIN [Concomitant]
     Indication: INFECTION

REACTIONS (5)
  - HAEMATURIA [None]
  - LYMPHADENOPATHY [None]
  - LYMPHOEDEMA [None]
  - RECTAL HAEMORRHAGE [None]
  - THROMBOSIS [None]
